FAERS Safety Report 21227914 (Version 2)
Quarter: 2022Q3

REPORT INFORMATION
  Report Type: Report from Study
  Country: US (occurrence: US)
  Receive Date: 20220818
  Receipt Date: 20220901
  Transmission Date: 20221027
  Serious: Yes (Hospitalization, Other)
  Sender: FDA-Public Use
  Company Number: US-GILEAD-2022-0594030

PATIENT
  Sex: Female

DRUGS (1)
  1. BICTEGRAVIR\EMTRICITABINE\TENOFOVIR ALAFENAMIDE [Suspect]
     Active Substance: BICTEGRAVIR\EMTRICITABINE\TENOFOVIR ALAFENAMIDE
     Indication: HIV infection
     Dosage: 275 MG, QD
     Route: 048

REACTIONS (5)
  - Amnesia [Unknown]
  - Mental disorder [Unknown]
  - Homeless [Unknown]
  - Encephalitis viral [Unknown]
  - Treatment noncompliance [Unknown]
